FAERS Safety Report 8099425 (Version 3)
Quarter: 2014Q1

REPORT INFORMATION
  Report Type: Report from Study
  Country: JP (occurrence: JP)
  Receive Date: 20110822
  Receipt Date: 20140227
  Transmission Date: 20141002
  Serious: Yes (Death, Hospitalization, Other)
  Sender: FDA-Public Use
  Company Number: JP-CELGENEUS-087-50794-11081276

PATIENT
  Age: 68 Year
  Sex: Male

DRUGS (38)
  1. VIDAZA [Suspect]
     Indication: MYELODYSPLASTIC SYNDROME TRANSFORMATION
     Dosage: 75 MILLIGRAM/SQ. METER
     Route: 041
     Dates: start: 20110523, end: 20110529
  2. VIDAZA [Suspect]
     Dosage: 75 MILLIGRAM/SQ. METER
     Route: 041
     Dates: start: 20110621, end: 20110627
  3. VIDAZA [Suspect]
     Dosage: 75 MILLIGRAM/SQ. METER
     Route: 041
     Dates: start: 20110719, end: 20110727
  4. VIDAZA [Suspect]
     Dosage: 75 MILLIGRAM/SQ. METER
     Route: 041
     Dates: start: 20110816, end: 20110824
  5. VIDAZA [Suspect]
     Dosage: 75 MILLIGRAM/SQ. METER
     Route: 041
     Dates: start: 20110912, end: 20110918
  6. VIDAZA [Suspect]
     Dosage: 75 MILLIGRAM/SQ. METER
     Route: 041
     Dates: start: 20111031, end: 20111106
  7. VIDAZA [Suspect]
     Dosage: 75 MILLIGRAM/SQ. METER
     Route: 041
     Dates: start: 20111128, end: 20111204
  8. CYLOCIDE [Concomitant]
     Indication: PRODUCT USED FOR UNKNOWN INDICATION
     Route: 065
  9. DAUNOMYCIN [Concomitant]
     Indication: PRODUCT USED FOR UNKNOWN INDICATION
     Route: 065
  10. PARIET [Concomitant]
     Indication: PRODUCT USED FOR UNKNOWN INDICATION
     Route: 065
     Dates: start: 20100821
  11. HARNAL [Concomitant]
     Indication: PRODUCT USED FOR UNKNOWN INDICATION
     Route: 065
     Dates: end: 20111221
  12. ITRIZOLE [Concomitant]
     Indication: PRODUCT USED FOR UNKNOWN INDICATION
     Route: 065
     Dates: end: 20111221
  13. BAKTAR [Concomitant]
     Indication: PRODUCT USED FOR UNKNOWN INDICATION
     Route: 065
     Dates: end: 20111216
  14. HYPEN [Concomitant]
     Indication: PRODUCT USED FOR UNKNOWN INDICATION
     Route: 065
     Dates: start: 20110912, end: 20111221
  15. MAGMITT [Concomitant]
     Indication: PRODUCT USED FOR UNKNOWN INDICATION
     Route: 065
     Dates: end: 20111209
  16. LENDORMIN [Concomitant]
     Indication: PRODUCT USED FOR UNKNOWN INDICATION
     Route: 065
     Dates: end: 20111215
  17. LOXONIN [Concomitant]
     Indication: PRODUCT USED FOR UNKNOWN INDICATION
     Route: 065
     Dates: start: 20110617, end: 20110724
  18. VOLTAREN [Concomitant]
     Indication: PRODUCT USED FOR UNKNOWN INDICATION
     Route: 065
     Dates: start: 20110725, end: 20110911
  19. GRANISETRON [Concomitant]
     Indication: PRODUCT USED FOR UNKNOWN INDICATION
     Route: 065
     Dates: start: 20110523, end: 20110529
  20. GRANISETRON [Concomitant]
     Route: 065
     Dates: start: 20110624, end: 20110627
  21. GRANISETRON [Concomitant]
     Route: 065
     Dates: start: 20110719, end: 20110727
  22. GRANISETRON [Concomitant]
     Route: 065
     Dates: start: 20110816, end: 20110824
  23. GRANISETRON [Concomitant]
     Route: 065
     Dates: start: 20110912, end: 20110918
  24. GRANISETRON [Concomitant]
     Route: 065
     Dates: start: 20111031, end: 20111106
  25. GRANISETRON [Concomitant]
     Route: 065
     Dates: start: 20111128, end: 20111204
  26. SOLU-CORTEF [Concomitant]
     Indication: PRODUCT USED FOR UNKNOWN INDICATION
     Route: 065
     Dates: start: 20110720, end: 20110922
  27. ATARAX-P [Concomitant]
     Indication: PRODUCT USED FOR UNKNOWN INDICATION
     Route: 065
     Dates: start: 20110831, end: 20110831
  28. OXYCONTIN [Concomitant]
     Indication: PRODUCT USED FOR UNKNOWN INDICATION
     Route: 065
     Dates: start: 20110909, end: 20111106
  29. OXYCONTIN [Concomitant]
     Route: 065
     Dates: end: 20111217
  30. POLARAMINE [Concomitant]
     Indication: PRODUCT USED FOR UNKNOWN INDICATION
     Route: 065
     Dates: start: 20110912, end: 20110915
  31. OXINORM [Concomitant]
     Indication: PRODUCT USED FOR UNKNOWN INDICATION
     Route: 065
     Dates: start: 20110914
  32. ZYPREXA [Concomitant]
     Indication: PRODUCT USED FOR UNKNOWN INDICATION
     Route: 065
     Dates: start: 20111026, end: 20111212
  33. ZOMETA [Concomitant]
     Indication: PRODUCT USED FOR UNKNOWN INDICATION
     Route: 065
     Dates: start: 20110930, end: 20111104
  34. ZOMETA [Concomitant]
     Route: 065
     Dates: start: 20111202, end: 20111216
  35. FINIBAX [Concomitant]
     Indication: PRODUCT USED FOR UNKNOWN INDICATION
     Route: 065
     Dates: start: 20111101, end: 20111106
  36. ROHYPNOL [Concomitant]
     Indication: PRODUCT USED FOR UNKNOWN INDICATION
     Route: 065
     Dates: start: 20110526
  37. DUROTEP [Concomitant]
     Indication: PRODUCT USED FOR UNKNOWN INDICATION
     Route: 065
     Dates: start: 20111214, end: 20111217
  38. ANPEC [Concomitant]
     Indication: PRODUCT USED FOR UNKNOWN INDICATION
     Route: 065
     Dates: start: 20111214, end: 20111216

REACTIONS (2)
  - Lung neoplasm malignant [Fatal]
  - Pneumonia [Recovered/Resolved]
